FAERS Safety Report 9752051 (Version 1)
Quarter: 2013Q4

REPORT INFORMATION
  Report Type: Spontaneous
  Country: US (occurrence: None)
  Receive Date: 20131211
  Receipt Date: 20131211
  Transmission Date: 20140711
  Serious: Yes (Other)
  Sender: FDA-Public Use
  Company Number: None

PATIENT
  Age: 63 Year
  Sex: Female
  Weight: 71.22 kg

DRUGS (2)
  1. XELJANZ 5MG BID PFIZER [Suspect]
     Indication: RHEUMATOID ARTHRITIS
     Dosage: 1 PILL
     Route: 048
     Dates: start: 20130909, end: 20131104
  2. METHTREXATE [Concomitant]

REACTIONS (1)
  - Herpes zoster [None]
